FAERS Safety Report 4548103-5 (Version None)
Quarter: 2005Q1

REPORT INFORMATION
  Report Type: 
  Country: None (occurrence: None)
  Receive Date: 20050110
  Receipt Date: 20041227
  Transmission Date: 20050727
  Serious: Yes (Hospitalization)
  Sender: FDA-Public Use
  Company Number: JP-NOVOPROD-241349

PATIENT
  Age: 31 Year
  Sex: Female

DRUGS (3)
  1. PENFILL R CHU [Suspect]
     Indication: DIABETES MELLITUS INSULIN-DEPENDENT
  2. PENFILL N CHU [Suspect]
     Indication: DIABETES MELLITUS INSULIN-DEPENDENT
  3. ETIZOLAM [Concomitant]
     Indication: PANIC DISORDER

REACTIONS (2)
  - HYPOGLYCAEMIA [None]
  - PANIC DISORDER [None]
